FAERS Safety Report 9933269 (Version 2)
Quarter: 2014Q1

REPORT INFORMATION
  Report Type: Spontaneous
  Country: US (occurrence: US)
  Receive Date: 20140228
  Receipt Date: 20140228
  Transmission Date: 20141002
  Serious: No
  Sender: FDA-Public Use
  Company Number: US-MYLANLABS-2013S1002798

PATIENT
  Age: 35 Year
  Sex: Male
  Weight: 77.11 kg

DRUGS (1)
  1. AMNESTEEM CAPSULES [Suspect]
     Indication: ACNE CYSTIC
     Dosage: 2 CAPSULES IN THE AM AND 2 CAPSULES AT HS.
     Route: 048
     Dates: start: 201103, end: 201111

REACTIONS (6)
  - Flushing [Recovering/Resolving]
  - Burning sensation [Recovering/Resolving]
  - Dry skin [Recovering/Resolving]
  - Skin exfoliation [Recovering/Resolving]
  - Drug prescribing error [Recovered/Resolved]
  - Incorrect drug administration duration [Recovered/Resolved]
